FAERS Safety Report 4570251-4 (Version None)
Quarter: 2005Q1

REPORT INFORMATION
  Report Type: 
  Country: None (occurrence: None)
  Receive Date: 20050202
  Receipt Date: 20050120
  Transmission Date: 20050727
  Serious: Yes (Hospitalization, Other)
  Sender: FDA-Public Use
  Company Number: 2004108236

PATIENT
  Age: 64 Year
  Sex: Female
  Weight: 90 kg

DRUGS (2)
  1. LIPITOR [Suspect]
     Indication: BLOOD CHOLESTEROL INCREASED
     Dosage: 40 MG (40 MG, 1 IN 1 D), ORAL
     Route: 048
  2. RISPERDAL [Suspect]
     Indication: SCHIZOPHRENIA
     Dosage: 3 MG (3 MG, 1 IN 1 D), ORAL
     Route: 048

REACTIONS (2)
  - RHABDOMYOLYSIS [None]
  - URINARY RETENTION [None]
